FAERS Safety Report 8597678-8 (Version None)
Quarter: 2012Q3

REPORT INFORMATION
  Report Type: 
  Country: None (occurrence: None)
  Receive Date: 20120816
  Receipt Date: 20120815
  Transmission Date: 20120928
  Serious: Yes (Hospitalization, Other)
  Sender: FDA-Public Use
  Company Number: JP-PFIZER INC-2012187366

PATIENT
  Age: 81 Year
  Sex: Female

DRUGS (4)
  1. URSO 250 [Concomitant]
     Dosage: UNK
  2. ZOLOFT [Suspect]
     Indication: DEPRESSION
     Dosage: 25 MG/DAY BEFORE BEDTIME
     Route: 048
  3. NEUROTROPIN [Concomitant]
     Dosage: UNK
  4. CELEBREX [Concomitant]
     Dosage: UNK

REACTIONS (3)
  - FEMUR FRACTURE [None]
  - DEMENTIA [None]
  - JOINT DISLOCATION [None]
